FAERS Safety Report 9059494 (Version 1)
Quarter: 2013Q1

REPORT INFORMATION
  Report Type: Report from Study
  Country: US (occurrence: US)
  Receive Date: 20130211
  Receipt Date: 20130211
  Transmission Date: 20140127
  Serious: Yes (Hospitalization)
  Sender: FDA-Public Use
  Company Number: US-SHIRE-SPV1-2008-02237

PATIENT
  Sex: 0

DRUGS (3)
  1. IDURSULFASE [Suspect]
     Indication: MUCOPOLYSACCHARIDOSIS II
     Dosage: 12 MG, 1X/WEEK
     Route: 041
     Dates: start: 20061110
  2. DIPHENHYDRAMINE [Concomitant]
     Indication: PRODUCT USED FOR UNKNOWN INDICATION
     Dosage: 25 MG, 1X/WEEK
     Route: 042
     Dates: start: 20070206
  3. HEPARIN LMW [Concomitant]
     Indication: PRODUCT USED FOR UNKNOWN INDICATION
     Dosage: 500 IU, 1X/WEEK
     Route: 042
     Dates: start: 20061206

REACTIONS (2)
  - Tooth disorder [Recovered/Resolved]
  - Laryngeal mass [Recovered/Resolved]
